FAERS Safety Report 23189062 (Version 3)
Quarter: 2024Q1

REPORT INFORMATION
  Report Type: Spontaneous
  Country: FR (occurrence: FR)
  Receive Date: 20231115
  Receipt Date: 20240115
  Transmission Date: 20240409
  Serious: Yes (Disabling)
  Sender: FDA-Public Use
  Company Number: None

PATIENT
  Age: 73 Year
  Sex: Female
  Weight: 65 kg

DRUGS (5)
  1. RINVOQ [Suspect]
     Active Substance: UPADACITINIB
     Indication: Rheumatoid arthritis
     Dosage: 15 MG / 1 DOSAGE FORM
     Route: 048
     Dates: start: 20211215, end: 20231020
  2. VALACYCLOVIR HYDROCHLORIDE [Concomitant]
     Active Substance: VALACYCLOVIR HYDROCHLORIDE
     Indication: Product used for unknown indication
     Dosage: 500 MG
  3. METHOTREXATE SODIUM [Suspect]
     Active Substance: METHOTREXATE SODIUM
     Indication: Rheumatoid arthritis
     Dosage: PER OS AT 15 MG PER WEEK OR 12.5 MG PER WEEK OR 10 MG PER WEEK
     Route: 048
     Dates: start: 201506, end: 202106
  4. CALCIUM CARBONATE\CHOLECALCIFEROL [Concomitant]
     Active Substance: CALCIUM CARBONATE\CHOLECALCIFEROL
     Indication: Product used for unknown indication
     Dosage: 1000 MG/880 UI, EFFERVESCENT GRANULES FOR ORAL SOLUTION IN BAGS
  5. PREDNISONE [Suspect]
     Active Substance: PREDNISONE
     Indication: Rheumatoid arthritis
     Route: 048
     Dates: start: 20110608, end: 20220404

REACTIONS (11)
  - Fractured coccyx [Not Recovered/Not Resolved]
  - Joint lock [Unknown]
  - Haemarthrosis [Unknown]
  - Complex regional pain syndrome [Unknown]
  - Arthropathy [Unknown]
  - Complex regional pain syndrome [Unknown]
  - Pain [Not Recovered/Not Resolved]
  - Lower limb fracture [Not Recovered/Not Resolved]
  - Ankle fracture [Not Recovered/Not Resolved]
  - Fall [Unknown]
  - Spinal cord compression [Not Recovered/Not Resolved]

NARRATIVE: CASE EVENT DATE: 20221001
